FAERS Safety Report 4507487-4 (Version None)
Quarter: 2004Q4

REPORT INFORMATION
  Report Type: 
  Country: None (occurrence: None)
  Receive Date: 20041118
  Receipt Date: 20041105
  Transmission Date: 20050328
  Serious: Yes (Other)
  Sender: FDA-Public Use
  Company Number: 2004242130FR

PATIENT
  Age: 78 Year
  Sex: Female

DRUGS (2)
  1. LOMEFLOXACIN HYDROCHLORIDE TABLET (LOMEFLOXACIN HYDROCHLORIDE) [Suspect]
     Indication: URINARY TRACT INFECTION
  2. AMIODARONE HCL [Suspect]
     Indication: EXTRASYSTOLES

REACTIONS (9)
  - ATRIAL FIBRILLATION [None]
  - CHEST PAIN [None]
  - LOSS OF CONSCIOUSNESS [None]
  - NASOPHARYNGITIS [None]
  - PALPITATIONS [None]
  - SUPRAVENTRICULAR EXTRASYSTOLES [None]
  - VENTRICULAR EXTRASYSTOLES [None]
  - VENTRICULAR FIBRILLATION [None]
  - VENTRICULAR TACHYCARDIA [None]
